FAERS Safety Report 22267369 (Version 1)
Quarter: 2023Q2

REPORT INFORMATION
  Report Type: Report from Study
  Country: FR (occurrence: FR)
  Receive Date: 20230428
  Receipt Date: 20230428
  Transmission Date: 20230722
  Serious: Yes (Other)
  Sender: FDA-Public Use
  Company Number: FR-BRISTOL-MYERS SQUIBB COMPANY-2023-059843

PATIENT

DRUGS (1)
  1. NIVOLUMAB [Suspect]
     Active Substance: NIVOLUMAB
     Indication: Trichoblastic carcinoma
     Dosage: 60-MIN INTRAVENOUS INFUSION ON DAY 1 OF EVERY 14-DAY CYCLE
     Route: 042

REACTIONS (2)
  - Hyperthyroidism [Unknown]
  - Encephalopathy [Recovered/Resolved]
